FAERS Safety Report 4538804-7 (Version None)
Quarter: 2004Q4

REPORT INFORMATION
  Report Type: 
  Country: None (occurrence: None)
  Receive Date: 20041227
  Receipt Date: 20041213
  Transmission Date: 20050328
  Serious: Yes (Hospitalization)
  Sender: FDA-Public Use
  Company Number: US-AMGEN-US103248

PATIENT
  Sex: Female
  Weight: 97 kg

DRUGS (2)
  1. NEUPOGEN [Suspect]
     Indication: CHEMOTHERAPY
  2. PROCRIT [Concomitant]
     Route: 058
     Dates: start: 20040823

REACTIONS (6)
  - CHEST PAIN [None]
  - DYSPNOEA [None]
  - FACE OEDEMA [None]
  - PNEUMONIA [None]
  - VOMITING [None]
  - WHITE BLOOD CELL COUNT INCREASED [None]
